FAERS Safety Report 6545055-3 (Version None)
Quarter: 2010Q1

REPORT INFORMATION
  Report Type: 
  Country: None (occurrence: None)
  Receive Date: 20100121
  Receipt Date: 20100115
  Transmission Date: 20100710
  Serious: Yes (Hospitalization)
  Sender: FDA-Public Use
  Company Number: B0627602A

PATIENT
  Age: 30 Year
  Sex: Male

DRUGS (3)
  1. LAMOTRIGINE [Suspect]
     Dosage: 25MGK ALTERNATE DAYS
  2. VALPROIC ACID [Suspect]
     Dosage: 40MGKD PER DAY
     Route: 042
  3. VALPROIC ACID [Suspect]
     Dosage: 1000MGK PER DAY
     Route: 048

REACTIONS (3)
  - CONDITION AGGRAVATED [None]
  - PSYCHOTIC BEHAVIOUR [None]
  - PSYCHOTIC DISORDER [None]
